FAERS Safety Report 9535460 (Version 1)
Quarter: 2013Q3

REPORT INFORMATION
  Report Type: Spontaneous
  Country: CA (occurrence: CA)
  Receive Date: 20130918
  Receipt Date: 20130918
  Transmission Date: 20140515
  Serious: Yes (Other)
  Sender: FDA-Public Use
  Company Number: CA-BAXTER-2013BAX036092

PATIENT
  Age: 60 Year
  Sex: Female

DRUGS (9)
  1. 20% OSMITROL (MANNITOL IN WATER) [Suspect]
     Indication: INTRACRANIAL PRESSURE INCREASED
     Route: 042
  2. 20% OSMITROL (MANNITOL IN WATER) [Suspect]
     Route: 042
  3. DEXAMETHASONE [Concomitant]
     Indication: PRODUCT USED FOR UNKNOWN INDICATION
     Route: 065
  4. DEXAMETHASONE [Concomitant]
     Route: 065
  5. DEXAMETHASONE [Concomitant]
     Route: 065
  6. PHENYTOIN [Concomitant]
     Indication: PRODUCT USED FOR UNKNOWN INDICATION
     Route: 065
  7. PHENYTOIN [Concomitant]
     Route: 065
  8. CODEINE [Concomitant]
     Indication: PAIN
     Route: 065
  9. FUROSEMIDE [Concomitant]
     Indication: CONSCIOUSNESS FLUCTUATING
     Route: 042

REACTIONS (1)
  - Hypersensitivity [Recovered/Resolved]
